FAERS Safety Report 23503810 (Version 1)
Quarter: 2024Q1

REPORT INFORMATION
  Report Type: Spontaneous
  Country: US (occurrence: US)
  Receive Date: 20240209
  Receipt Date: 20240209
  Transmission Date: 20240410
  Serious: No
  Sender: FDA-Public Use
  Company Number: US-TARO PHARMACEUTICALS USA INC.-2023TAR00274

PATIENT
  Age: 68 Year
  Sex: Female

DRUGS (1)
  1. MOMETASONE FUROATE [Suspect]
     Active Substance: MOMETASONE FUROATE
     Indication: Eczema
     Dosage: UNK, WEEKLY
     Route: 065
     Dates: start: 20230124

REACTIONS (3)
  - Erythema [Unknown]
  - Ear pain [Unknown]
  - Wrong technique in product usage process [Unknown]
